FAERS Safety Report 22844231 (Version 2)
Quarter: 2023Q4

REPORT INFORMATION
  Report Type: Spontaneous
  Country: PT (occurrence: PT)
  Receive Date: 20230821
  Receipt Date: 20231019
  Transmission Date: 20240109
  Serious: Yes (Death, Life-Threatening, Hospitalization, Other)
  Sender: FDA-Public Use
  Company Number: PT-002147023-NVSC2021PT237990

PATIENT
  Age: 62 Year
  Sex: Female
  Weight: 62 kg

DRUGS (14)
  1. ABEMACICLIB [Suspect]
     Active Substance: ABEMACICLIB
     Indication: Breast cancer
     Dosage: 300 MG, DAILY
     Route: 048
     Dates: start: 20190504, end: 20201007
  2. ABEMACICLIB [Suspect]
     Active Substance: ABEMACICLIB
     Dosage: 300 MG, DAILY
     Route: 065
     Dates: start: 20201027, end: 20210420
  3. LETROZOLE [Suspect]
     Active Substance: LETROZOLE
     Indication: Breast cancer
     Dosage: 2.5 MG, DAILY
     Route: 048
     Dates: start: 20190503, end: 20210420
  4. LETROZOLE [Suspect]
     Active Substance: LETROZOLE
     Dosage: 2.5 MG, DAILY
     Route: 048
     Dates: start: 20210420, end: 20210720
  5. ASPIRIN [Concomitant]
     Active Substance: ASPIRIN
     Indication: Prophylaxis
     Dosage: UNK, UNKNOWN
     Route: 065
     Dates: start: 20200108
  6. FLUCLOXACILLIN [Concomitant]
     Active Substance: FLUCLOXACILLIN
     Indication: Cellulitis
     Dosage: UNK, UNKNOWN
     Route: 065
     Dates: start: 20200728
  7. LOPERAMIDE [Concomitant]
     Active Substance: LOPERAMIDE
     Indication: Diarrhoea
     Dosage: UNK, UNKNOWN
     Route: 065
     Dates: start: 20190522
  8. AMYLASE [Concomitant]
     Active Substance: AMYLASE
     Indication: Cellulitis
     Dosage: UNK, UNKNOWN
     Route: 065
     Dates: start: 20200728
  9. NOLOTIL [DEXTROPROPOXYPHENE;METAMIZOLE MAGNES [Concomitant]
     Indication: Hernia
     Dosage: UNK, UNKNOWN
     Route: 065
  10. ZOLEDRONIC ACID [Concomitant]
     Active Substance: ZOLEDRONIC ACID
     Indication: Metastatic bone disease prophylaxis
     Dosage: UNK, UNKNOWN
     Route: 065
     Dates: start: 20200429
  11. CAPECITABINE [Concomitant]
     Active Substance: CAPECITABINE
     Indication: Product used for unknown indication
     Dosage: UNK, UNKNOWN
     Route: 065
     Dates: start: 20210929
  12. CINCHOCAINE;PREDNISOLONE [Concomitant]
     Indication: Prophylaxis
     Dosage: UNK, UNKNOWN
     Route: 065
     Dates: start: 20190530
  13. ACYCLOVIR [Concomitant]
     Active Substance: ACYCLOVIR
     Indication: Oral herpes
     Dosage: UNK UNK, UNKNOWN
     Route: 065
     Dates: start: 20190530
  14. AMOXICILLIN\CLAVULANIC ACID [Concomitant]
     Active Substance: AMOXICILLIN\CLAVULANIC ACID
     Indication: Prophylaxis
     Dosage: UNK, UNKNOWN
     Route: 065
     Dates: start: 20210205

REACTIONS (8)
  - Adenocarcinoma pancreas [Fatal]
  - Second primary malignancy [Fatal]
  - Abdominal pain [Recovered/Resolved]
  - Vomiting [Unknown]
  - Decreased appetite [Unknown]
  - Lethargy [Unknown]
  - Nausea [Unknown]
  - Fatigue [Unknown]

NARRATIVE: CASE EVENT DATE: 20210721
